FAERS Safety Report 5522641-0 (Version None)
Quarter: 2007Q4

REPORT INFORMATION
  Report Type: 
  Country: None (occurrence: None)
  Receive Date: 20071120
  Receipt Date: 20071119
  Transmission Date: 20080405
  Serious: Yes (Hospitalization)
  Sender: FDA-Public Use
  Company Number: US-SHR-US-2007-021660

PATIENT
  Age: 48 Year
  Sex: Female
  Weight: 100.23 kg

DRUGS (2)
  1. BETASERON [Suspect]
     Indication: RELAPSING-REMITTING MULTIPLE SCLEROSIS
     Dosage: 8 MIU, EVERY 2D
     Route: 058
     Dates: start: 19990831
  2. NEURONTIN [Concomitant]
     Dosage: UNK, AS REQ'D

REACTIONS (2)
  - INJECTION SITE INFECTION [None]
  - INJECTION SITE NECROSIS [None]
